FAERS Safety Report 22397010 (Version 11)
Quarter: 2024Q2

REPORT INFORMATION
  Report Type: Report from Study
  Country: US (occurrence: US)
  Receive Date: 20230602
  Receipt Date: 20240617
  Transmission Date: 20240716
  Serious: Yes (Hospitalization, Other)
  Sender: FDA-Public Use
  Company Number: US-ACADIA PHARMACEUTICALS INC.-ACA-2023-TRF-001788

PATIENT
  Age: 6 Year
  Sex: Female
  Weight: 25 kg

DRUGS (17)
  1. DAYBUE [Suspect]
     Active Substance: TROFINETIDE
     Indication: Rett syndrome
     Dosage: 10 MILLILITER, BID
     Route: 048
     Dates: start: 20230505
  2. DAYBUE [Suspect]
     Active Substance: TROFINETIDE
     Dosage: 40 MILLILITER, BID
     Route: 048
  3. DAYBUE [Suspect]
     Active Substance: TROFINETIDE
     Dosage: 30 MILLILITER, BID
     Route: 048
     Dates: end: 20230704
  4. DAYBUE [Suspect]
     Active Substance: TROFINETIDE
     Dosage: 10 MILLILITER, BID
     Route: 048
  5. DAYBUE [Suspect]
     Active Substance: TROFINETIDE
     Dosage: 20 MILLILITER, BID
  6. DAYBUE [Suspect]
     Active Substance: TROFINETIDE
     Dosage: 40 MILLILITER, BID
  7. DAYBUE [Suspect]
     Active Substance: TROFINETIDE
     Dosage: 10 MILLILITER, BID
     Route: 048
  8. DAYBUE [Suspect]
     Active Substance: TROFINETIDE
     Dosage: 15 MILLILITER BID
     Route: 048
  9. DAYBUE [Suspect]
     Active Substance: TROFINETIDE
     Dosage: 30 MILLILITER, BID
  10. CLOBAZAM [Concomitant]
     Active Substance: CLOBAZAM
     Dosage: 2.5 MG/ML, 3ML QHS
  11. DEPAKOTE [Concomitant]
     Active Substance: DIVALPROEX SODIUM
     Dosage: 125 MILLIGRAM, 2 CAPSULE AM AND 3 CAPSULES PM
  12. DEPAKOTE [Concomitant]
     Active Substance: DIVALPROEX SODIUM
     Dosage: 125 MILLIGRAM, 5 DAILY
  13. LEVOCARNITINE [Concomitant]
     Active Substance: LEVOCARNITINE
     Dosage: 350 MILLIGRAM, BID
  14. DIASTAT [Concomitant]
     Active Substance: DIAZEPAM
     Dosage: 10 MILLIGRAM PRN
     Route: 054
  15. ACETYLCARNITINE [Concomitant]
     Active Substance: ACETYLCARNITINE
     Dosage: 3.5 ML BID
  16. VALTOCO [Concomitant]
     Active Substance: DIAZEPAM
     Dosage: 10 MG/0.1ML, PRN
  17. MINERALS\VITAMINS [Concomitant]
     Active Substance: MINERALS\VITAMINS
     Dosage: 1 ML, DAILY

REACTIONS (22)
  - Weight decreased [Unknown]
  - Dehydration [Recovered/Resolved]
  - Dehydration [Recovered/Resolved]
  - Influenza [Recovered/Resolved]
  - Acute respiratory failure [Recovered/Resolved]
  - Parainfluenzae virus infection [Recovered/Resolved]
  - Diarrhoea [Recovered/Resolved]
  - Diarrhoea [Recovered/Resolved]
  - Seasonal allergy [Not Recovered/Not Resolved]
  - Hypophagia [Not Recovered/Not Resolved]
  - Body temperature fluctuation [Recovered/Resolved]
  - Asthenia [Unknown]
  - Prescribed underdose [Not Recovered/Not Resolved]
  - Gastrointestinal tube insertion [Not Recovered/Not Resolved]
  - Underdose [Not Recovered/Not Resolved]
  - Incorrect route of product administration [Not Recovered/Not Resolved]
  - Cough [Not Recovered/Not Resolved]
  - Secretion discharge [Not Recovered/Not Resolved]
  - Diarrhoea [Recovered/Resolved]
  - Diarrhoea [Not Recovered/Not Resolved]
  - Pyrexia [Recovered/Resolved]
  - Fatigue [Recovered/Resolved]

NARRATIVE: CASE EVENT DATE: 20230505
